FAERS Safety Report 17004690 (Version 18)
Quarter: 2025Q2

REPORT INFORMATION
  Report Type: Spontaneous
  Country: US (occurrence: US)
  Receive Date: 20191107
  Receipt Date: 20250623
  Transmission Date: 20250716
  Serious: Yes (Other)
  Sender: PFIZER
  Company Number: US-PFIZER INC-2019478801

PATIENT
  Age: 76 Year
  Sex: Female
  Weight: 72.57 kg

DRUGS (5)
  1. PREMARIN [Suspect]
     Active Substance: ESTROGENS, CONJUGATED
     Indication: Endocrine disorder
     Dosage: UNK, 2X/WEEK (FIRST MARK ON THE APPLICATOR TWICE A WEEK)
     Route: 067
     Dates: start: 2016
  2. PREMARIN [Suspect]
     Active Substance: ESTROGENS, CONJUGATED
     Indication: Urethral disorder
     Dates: start: 2018
  3. PREMARIN [Suspect]
     Active Substance: ESTROGENS, CONJUGATED
     Indication: Bladder disorder
     Dosage: 0.625 MG, 2X/WEEK
  4. PREMARIN [Suspect]
     Active Substance: ESTROGENS, CONJUGATED
     Indication: Vaginal disorder
     Dosage: 0.5 G, 2X/WEEK (APPLY TO VULVA AND URETHRAL OPENING TWICE WEEKLY)
     Route: 067
     Dates: start: 20200207
  5. PREMARIN [Suspect]
     Active Substance: ESTROGENS, CONJUGATED
     Indication: Urinary tract infection
     Dosage: 0.5 G, 2X/WEEK (APPLY TO VULVA AND URETHRAL OPENING TWICE WEEKLY)
     Route: 066
     Dates: start: 20200207

REACTIONS (4)
  - Diverticulitis [Unknown]
  - Off label use [Unknown]
  - Drug effective for unapproved indication [Unknown]
  - Memory impairment [Unknown]

NARRATIVE: CASE EVENT DATE: 20160101
